FAERS Safety Report 7334481-0 (Version None)
Quarter: 2011Q1

REPORT INFORMATION
  Report Type: 
  Country: None (occurrence: None)
  Receive Date: 20110222
  Receipt Date: 20110208
  Transmission Date: 20110831
  Serious: Yes (Hospitalization, Other)
  Sender: FDA-Public Use
  Company Number: LTI2011A00008

PATIENT
  Age: 81 Year
  Sex: Male

DRUGS (10)
  1. AMARYL [Concomitant]
  2. TAMSULOSIN HCL [Concomitant]
  3. KARDEGIC (ACETYLSALICYLATE LYSINE) [Concomitant]
  4. MEDIATOR (BENFLUOREX HYDROCHLORIDE) [Concomitant]
  5. AVODART [Concomitant]
  6. ACTOS [Suspect]
     Indication: TYPE 2 DIABETES MELLITUS
     Dosage: 15 MG (15 MG, 1 IN 1 D), ORAL
     Route: 048
     Dates: start: 20070301
  7. LEVOTHYROXINE SODIUM [Concomitant]
  8. PRAXILENE (NAFTIDROFURYL OXALATE) [Concomitant]
  9. TRIATEC (RAMIPRIL) [Concomitant]
  10. FENOFIBRATE [Concomitant]

REACTIONS (11)
  - URETHRAL STENOSIS [None]
  - HEPATIC STEATOSIS [None]
  - NEPHROLITHIASIS [None]
  - POLLAKIURIA [None]
  - URINARY INCONTINENCE [None]
  - BLADDER CANCER STAGE 0, WITH CANCER IN SITU [None]
  - MICTURITION URGENCY [None]
  - PENIS DISORDER [None]
  - PANCREATIC DISORDER [None]
  - BACTERIURIA [None]
  - URINE FLOW DECREASED [None]
